FAERS Safety Report 8909214 (Version 1)
Quarter: 2012Q4

REPORT INFORMATION
  Report Type: Spontaneous
  Country: US (occurrence: None)
  Receive Date: 20121113
  Receipt Date: 20121113
  Transmission Date: 20130627
  Serious: Yes (Life-Threatening, Hospitalization)
  Sender: FDA-Public Use
  Company Number: None

PATIENT
  Age: 70 Year
  Sex: Male

DRUGS (1)
  1. SUCCINYLCHOLINE [Suspect]
     Indication: THERAPEUTIC PROCEDURE
     Dates: start: 20120820, end: 20120820

REACTIONS (2)
  - Respiratory distress [None]
  - Muscular weakness [None]
